FAERS Safety Report 14559604 (Version 2)
Quarter: 2018Q2

REPORT INFORMATION
  Report Type: Spontaneous
  Country: CA (occurrence: CA)
  Receive Date: 20180221
  Receipt Date: 20180509
  Transmission Date: 20180711
  Serious: Yes (Other)
  Sender: FDA-Public Use
  Company Number: CA-SHIRE-CA201804081

PATIENT

DRUGS (1)
  1. INTUNIV [Suspect]
     Active Substance: GUANFACINE HYDROCHLORIDE
     Indication: ATTENTION DEFICIT/HYPERACTIVITY DISORDER
     Dosage: 80 DF, 1X/DAY:QD
     Route: 048
     Dates: start: 20131221, end: 20170830

REACTIONS (1)
  - Urinary retention [Recovered/Resolved]

NARRATIVE: CASE EVENT DATE: 20170630
